FAERS Safety Report 13783673 (Version 1)
Quarter: 2017Q3

REPORT INFORMATION
  Report Type: Spontaneous
  Country: TR (occurrence: TR)
  Receive Date: 20170724
  Receipt Date: 20170724
  Transmission Date: 20171127
  Serious: Yes (Hospitalization)
  Sender: FDA-Public Use
  Company Number: TR-MYLANLABS-2017M1043778

PATIENT

DRUGS (1)
  1. LEVETIRACETAM. [Suspect]
     Active Substance: LEVETIRACETAM
     Indication: SEIZURE
     Dosage: ON 10 OCCASIONS ADMINISTERED 200 MG/KG/DAY FOR 55 DAYS
     Route: 065

REACTIONS (2)
  - No adverse event [Recovered/Resolved]
  - Accidental overdose [Recovered/Resolved]
